FAERS Safety Report 6231395-4 (Version None)
Quarter: 2009Q2

REPORT INFORMATION
  Report Type: 
  Country: None (occurrence: None)
  Receive Date: 20090616
  Receipt Date: 20090603
  Transmission Date: 20091009
  Serious: Yes (Hospitalization)
  Sender: FDA-Public Use
  Company Number: US-WYE-H09581409

PATIENT
  Sex: Female
  Weight: 72.7 kg

DRUGS (2)
  1. ADVIL [Suspect]
     Indication: PAIN
     Dosage: 200 MG, FREQUENCY UNKNOWN
     Route: 048
     Dates: start: 20090201, end: 20090520
  2. PRADAXA [Suspect]
     Indication: EMBOLISM
     Dosage: UNKNOWN
     Route: 048
     Dates: start: 20060619, end: 20090520

REACTIONS (3)
  - ANAEMIA [None]
  - DIARRHOEA [None]
  - DIARRHOEA HAEMORRHAGIC [None]
